FAERS Safety Report 19094976 (Version 1)
Quarter: 2021Q2

REPORT INFORMATION
  Report Type: Spontaneous
  Country: CA (occurrence: CA)
  Receive Date: 20210405
  Receipt Date: 20210405
  Transmission Date: 20210717
  Serious: Yes (Other)
  Sender: FDA-Public Use
  Company Number: CA-JNJFOC-20210109468

PATIENT
  Age: 31 Year
  Sex: Male
  Weight: 61 kg

DRUGS (4)
  1. REMICADE [Suspect]
     Active Substance: INFLIXIMAB
     Route: 042
  2. SOLU?CORTEF [Concomitant]
     Active Substance: HYDROCORTISONE SODIUM SUCCINATE
     Indication: PREMEDICATION
     Route: 030
  3. REMICADE [Suspect]
     Active Substance: INFLIXIMAB
     Indication: CROHN^S DISEASE
     Route: 042
  4. HYDROCORTISONE. [Concomitant]
     Active Substance: HYDROCORTISONE
     Indication: PREMEDICATION
     Route: 042

REACTIONS (11)
  - Off label use [Unknown]
  - Infusion related reaction [Unknown]
  - Intentional product use issue [Unknown]
  - Discomfort [Unknown]
  - Back pain [Unknown]
  - Therapeutic response shortened [Unknown]
  - Restless legs syndrome [Unknown]
  - Product use issue [Unknown]
  - Hypoaesthesia [Unknown]
  - Poor venous access [Unknown]
  - Incorrect dose administered [Unknown]
